FAERS Safety Report 12563714 (Version 2)
Quarter: 2016Q4

REPORT INFORMATION
  Report Type: Spontaneous
  Country: PH (occurrence: PH)
  Receive Date: 20160716
  Receipt Date: 20161101
  Transmission Date: 20170207
  Serious: Yes (Hospitalization)
  Sender: FDA-Public Use
  Company Number: PH-ASTRAZENECA-2016SE74365

PATIENT
  Age: 48 Year
  Sex: Female

DRUGS (2)
  1. QUADRUPLE ANTIDIABETIC THERAPY [Concomitant]
     Indication: DIABETES MELLITUS INADEQUATE CONTROL
  2. FORXIGA [Suspect]
     Active Substance: DAPAGLIFLOZIN
     Indication: TYPE 2 DIABETES MELLITUS
     Route: 048

REACTIONS (4)
  - Calculus urinary [Unknown]
  - Urinary tract infection [Unknown]
  - Urosepsis [Unknown]
  - Diabetes mellitus inadequate control [Unknown]
